FAERS Safety Report 25588350 (Version 1)
Quarter: 2025Q3

REPORT INFORMATION
  Report Type: Spontaneous
  Country: US (occurrence: US)
  Receive Date: 20250722
  Receipt Date: 20250722
  Transmission Date: 20251020
  Serious: No
  Sender: ENDO
  Company Number: US-ENDO USA, INC.-2025-000170

PATIENT

DRUGS (11)
  1. EDEX [Suspect]
     Active Substance: ALPROSTADIL
     Indication: Product used for unknown indication
     Route: 065
     Dates: start: 20250122
  2. EDEX [Suspect]
     Active Substance: ALPROSTADIL
     Indication: Product used for unknown indication
     Route: 065
     Dates: start: 20250122
  3. EDEX [Suspect]
     Active Substance: ALPROSTADIL
     Indication: Product used for unknown indication
     Route: 065
     Dates: start: 20250122
  4. EDEX [Suspect]
     Active Substance: ALPROSTADIL
     Indication: Product used for unknown indication
     Route: 065
     Dates: start: 20250122
  5. EDEX [Suspect]
     Active Substance: ALPROSTADIL
     Indication: Product used for unknown indication
     Route: 065
     Dates: start: 20250122
  6. EDEX [Suspect]
     Active Substance: ALPROSTADIL
     Route: 065
  7. EDEX [Suspect]
     Active Substance: ALPROSTADIL
     Route: 065
  8. EDEX [Suspect]
     Active Substance: ALPROSTADIL
     Route: 065
  9. EDEX [Suspect]
     Active Substance: ALPROSTADIL
     Route: 065
  10. EDEX [Suspect]
     Active Substance: ALPROSTADIL
     Route: 065
  11. WARFARIN [Suspect]
     Active Substance: WARFARIN
     Indication: Product used for unknown indication
     Route: 065

REACTIONS (1)
  - International normalised ratio increased [Not Recovered/Not Resolved]

NARRATIVE: CASE EVENT DATE: 20250123
